FAERS Safety Report 16562406 (Version 2)
Quarter: 2019Q3

REPORT INFORMATION
  Report Type: Spontaneous
  Country: US (occurrence: US)
  Receive Date: 20190711
  Receipt Date: 20190726
  Transmission Date: 20191004
  Serious: Yes (Other)
  Sender: FDA-Public Use
  Company Number: US-BAYER-2019-125648

PATIENT
  Age: 24 Year
  Sex: Female
  Weight: 74.83 kg

DRUGS (2)
  1. MIRENA [Suspect]
     Active Substance: LEVONORGESTREL
     Indication: CONTRACEPTION
  2. MIRENA [Suspect]
     Active Substance: LEVONORGESTREL
     Indication: CONTRACEPTION
     Dosage: 20 MCG/24HR, CONT
     Route: 015
     Dates: start: 20190626, end: 20190705

REACTIONS (10)
  - Intra-abdominal fluid collection [Recovered/Resolved]
  - Abdominal pain [Recovered/Resolved]
  - Bacterial vulvovaginitis [Recovered/Resolved]
  - Fungal infection [Recovered/Resolved]
  - Urinary tract infection [Recovered/Resolved]
  - Device issue [Recovered/Resolved]
  - Rectal haemorrhage [Recovered/Resolved]
  - Uterine perforation [Recovered/Resolved]
  - Intra-abdominal haemorrhage [Recovered/Resolved]
  - Procedural pain [Recovered/Resolved]

NARRATIVE: CASE EVENT DATE: 20190626
